FAERS Safety Report 18979873 (Version 1)
Quarter: 2021Q1

REPORT INFORMATION
  Report Type: Report from Study
  Country: EG (occurrence: EG)
  Receive Date: 20210308
  Receipt Date: 20210308
  Transmission Date: 20210420
  Serious: Yes (Death)
  Sender: FDA-Public Use
  Company Number: NVSC2021EG051343

PATIENT
  Age: 64 Year
  Sex: Female

DRUGS (1)
  1. KISQALI [Suspect]
     Active Substance: RIBOCICLIB
     Indication: BREAST CANCER METASTATIC
     Dosage: 3 DF, QD
     Route: 048
     Dates: start: 20200201

REACTIONS (10)
  - Oedema peripheral [Fatal]
  - Metastases to skin [Fatal]
  - Malignant neoplasm progression [Fatal]
  - Pulmonary oedema [Fatal]
  - Lung cancer metastatic [Fatal]
  - Metastases to bone [Fatal]
  - Metastases to kidney [Fatal]
  - Breast cancer metastatic [Fatal]
  - Fatigue [Fatal]
  - Metastases to urinary tract [Fatal]

NARRATIVE: CASE EVENT DATE: 202101
